FAERS Safety Report 9511685 (Version 1)
Quarter: 2013Q3

REPORT INFORMATION
  Report Type: Spontaneous
  Country: GB (occurrence: None)
  Receive Date: 20130906
  Receipt Date: 20130906
  Transmission Date: 20140515
  Serious: Yes (Other)
  Sender: FDA-Public Use
  Company Number: 2013P1018972

PATIENT
  Sex: 0

DRUGS (2)
  1. ISOTRETINOIN [Suspect]
     Indication: DERMATITIS EXFOLIATIVE
     Dosage: 20-40 MG; QD; PO
     Route: 048
  2. ISOTRETINOIN [Suspect]
     Dosage: 20-40 MG; QD; PO
     Route: 048

REACTIONS (3)
  - Ichthyosis [None]
  - Osteonecrosis [None]
  - Vertebral osteophyte [None]
